FAERS Safety Report 23332667 (Version 1)
Quarter: 2023Q4

REPORT INFORMATION
  Report Type: Spontaneous
  Country: US (occurrence: US)
  Receive Date: 20231222
  Receipt Date: 20231222
  Transmission Date: 20240110
  Serious: No
  Sender: FDA-Public Use
  Company Number: US-CTI BIOPHARMA-2023US04068

PATIENT

DRUGS (14)
  1. VONJO [Suspect]
     Active Substance: PACRITINIB
     Indication: Myelofibrosis
     Dosage: 200 MG, BID
     Route: 048
     Dates: start: 20230307
  2. VONJO [Suspect]
     Active Substance: PACRITINIB
     Dosage: 100 MG, QD
     Route: 048
  3. CALTRATE + D [CALCIUM;ERGOCALCIFEROL] [Concomitant]
  4. FLAXSEED [Concomitant]
     Active Substance: FLAX SEED
  5. FOLIC ACID [Concomitant]
     Active Substance: FOLIC ACID
  6. LEVOTHYROXINE [Concomitant]
     Active Substance: LEVOTHYROXINE
  7. LISINOPRIL [Concomitant]
     Active Substance: LISINOPRIL
  8. METOPROLOL SUCCINATE [Concomitant]
     Active Substance: METOPROLOL SUCCINATE
  9. VITAMINS NOS [Concomitant]
     Active Substance: VITAMINS
  10. POTASSIUM CHLORIDE [Concomitant]
     Active Substance: POTASSIUM CHLORIDE
  11. PREDNISONE [Concomitant]
     Active Substance: PREDNISONE
  12. PROLIA [Concomitant]
     Active Substance: DENOSUMAB
  13. VITAMIN D3 [Concomitant]
     Active Substance: CHOLECALCIFEROL
  14. PRAVASTATIN [Concomitant]
     Active Substance: PRAVASTATIN

REACTIONS (1)
  - Adverse event [Unknown]
